FAERS Safety Report 19635829 (Version 1)
Quarter: 2021Q3

REPORT INFORMATION
  Report Type: Spontaneous
  Country: US (occurrence: US)
  Receive Date: 20210730
  Receipt Date: 20210730
  Transmission Date: 20211014
  Serious: Yes (Other)
  Sender: FDA-Public Use
  Company Number: US-SUN PHARMACEUTICAL INDUSTRIES LTD-2021R1-305918

PATIENT
  Age: 71 Year
  Sex: Male

DRUGS (3)
  1. PREDNISONE. [Suspect]
     Active Substance: PREDNISONE
     Indication: GLOMERULONEPHRITIS MINIMAL LESION
     Dosage: 1 MILLIGRAM/KILOGRAM
     Route: 065
  2. RITUXIMAB. [Suspect]
     Active Substance: RITUXIMAB
     Indication: PRODUCT USED FOR UNKNOWN INDICATION
     Dosage: 375 MILLIGRAM/SQ. METER, MONTHLY
     Route: 065
  3. LOSARTAN. [Suspect]
     Active Substance: LOSARTAN
     Indication: GLOMERULONEPHRITIS MINIMAL LESION
     Dosage: 100 MILLIGRAM, DAILY
     Route: 065

REACTIONS (5)
  - Cataract [Unknown]
  - Weight increased [Unknown]
  - Drug ineffective [Unknown]
  - Drug intolerance [Unknown]
  - Hyperglycaemia [Unknown]
